FAERS Safety Report 4381083-4 (Version None)
Quarter: 2004Q2

REPORT INFORMATION
  Report Type: 
  Country: None (occurrence: None)
  Receive Date: 20040601
  Receipt Date: 20040301
  Transmission Date: 20050107
  Serious: No
  Sender: FDA-Public Use
  Company Number: FABR-10487

PATIENT
  Age: 41 Year
  Sex: Female
  Weight: 79.6 kg

DRUGS (4)
  1. FABRAZYME [Suspect]
     Indication: FABRY'S DISEASE
     Dosage: 70 MG Q2WKS IV
     Route: 042
     Dates: start: 20030620
  2. ASPIRIN [Concomitant]
  3. DICLOFENAC SODIUM [Concomitant]
  4. NEURONTIN [Concomitant]

REACTIONS (2)
  - BURNING SENSATION [None]
  - PAIN IN EXTREMITY [None]
